FAERS Safety Report 11237292 (Version 3)
Quarter: 2015Q3

REPORT INFORMATION
  Report Type: Spontaneous
  Country: US (occurrence: US)
  Receive Date: 20150703
  Receipt Date: 20150817
  Transmission Date: 20151125
  Serious: No
  Sender: FDA-Public Use
  Company Number: US-009507513-1506USA014194

PATIENT
  Age: 33 Year
  Sex: Female
  Weight: 115.46 kg

DRUGS (4)
  1. NEXPLANON [Suspect]
     Active Substance: ETONOGESTREL
     Indication: CONTRACEPTION
     Dosage: 1 ROD PER 3 YEARS
     Route: 059
     Dates: start: 20150616
  2. TOPROL XL [Concomitant]
     Active Substance: METOPROLOL SUCCINATE
  3. ZOLOFT [Concomitant]
     Active Substance: SERTRALINE HYDROCHLORIDE
  4. MOBIC [Concomitant]
     Active Substance: MELOXICAM

REACTIONS (2)
  - Implant site pain [Not Recovered/Not Resolved]
  - Implant site vesicles [Not Recovered/Not Resolved]

NARRATIVE: CASE EVENT DATE: 20150617
